FAERS Safety Report 6970784-7 (Version None)
Quarter: 2010Q3

REPORT INFORMATION
  Report Type: 
  Country: None (occurrence: None)
  Receive Date: 20100908
  Receipt Date: 20100902
  Transmission Date: 20110219
  Serious: Yes (Other)
  Sender: FDA-Public Use
  Company Number: A0870271A

PATIENT
  Sex: Male

DRUGS (1)
  1. VOTRIENT [Suspect]
     Indication: PRODUCT USED FOR UNKNOWN INDICATION
     Dosage: 800MGD PER DAY
     Route: 048
     Dates: start: 20100619

REACTIONS (4)
  - BLOOD PRESSURE INCREASED [None]
  - FATIGUE [None]
  - NAUSEA [None]
  - PNEUMONIA [None]
